FAERS Safety Report 9005478 (Version 2)
Quarter: 2013Q1

REPORT INFORMATION
  Report Type: Report from Study
  Country: US (occurrence: US)
  Receive Date: 20130109
  Receipt Date: 20130117
  Transmission Date: 20140127
  Serious: Yes (Hospitalization)
  Sender: FDA-Public Use
  Company Number: US-PFIZER INC-2012114696

PATIENT
  Age: 69 Year
  Sex: Male
  Weight: 77.56 kg

DRUGS (14)
  1. CARBOPLATIN [Suspect]
     Indication: SQUAMOUS CELL CARCINOMA OF HEAD AND NECK
     Dosage: AUC 5 ON DAY ONE
     Dates: start: 20120321, end: 20120410
  2. FLUOROURACIL [Suspect]
     Indication: SQUAMOUS CELL CARCINOMA OF HEAD AND NECK
     Dosage: 1000 MG/M2, ON DAYS ONE TO FOUR
     Dates: start: 20120321, end: 20120410
  3. BLINDED THERAPY [Suspect]
     Indication: HEAD AND NECK CANCER
     Dosage: LOADING DOSE ON DAY ONE OF CYCLE ONE ONLY
     Dates: start: 20120321, end: 20120321
  4. BLINDED THERAPY [Suspect]
     Dosage: WEEKLY DOSE (ON DAY ONE EXCEPT CYCLE ONE, DAY EIGHT AND DAY 15)
     Dates: start: 20120328, end: 20120417
  5. SENNOSIDE A+B [Concomitant]
     Indication: CONSTIPATION
     Dosage: UNK
     Dates: start: 20120329
  6. HYDROMORPHONE [Concomitant]
     Indication: PAIN
     Dosage: UNK
     Dates: start: 20120330
  7. AMLODIPINE [Concomitant]
     Indication: HYPERTENSION
     Dosage: UNK
     Dates: start: 2010
  8. PREDNISONE [Concomitant]
     Indication: TUMOUR PAIN
     Dosage: UNK
     Dates: start: 20120404
  9. BYSTOLIC [Concomitant]
     Indication: HYPERTENSION
     Dosage: UNK
     Dates: start: 2011
  10. CLOPIDOGREL [Concomitant]
     Indication: THROMBOSIS PROPHYLAXIS
     Dosage: UNK
     Dates: start: 2011
  11. CRESTOR [Concomitant]
     Indication: BLOOD CHOLESTEROL INCREASED
     Dosage: UNK
     Dates: start: 2011
  12. LISINOPRIL [Concomitant]
     Indication: HYPERTENSION
     Dosage: UNK
     Dates: start: 2010
  13. ACETYLSALICYLIC ACID [Concomitant]
     Indication: THROMBOSIS PROPHYLAXIS
     Dosage: UNK
     Dates: start: 2011
  14. METOPROLOL [Concomitant]
     Indication: HYPERTENSION
     Dosage: UNK
     Dates: start: 20120404

REACTIONS (4)
  - Pyrexia [Recovered/Resolved]
  - Sinus tachycardia [Recovered/Resolved]
  - Dehydration [Recovered/Resolved]
  - Sepsis [Recovering/Resolving]
